FAERS Safety Report 6015118-X (Version None)
Quarter: 2008Q4

REPORT INFORMATION
  Report Type: 
  Country: None (occurrence: None)
  Receive Date: 20081222
  Receipt Date: 20081216
  Transmission Date: 20090506
  Serious: Yes (Hospitalization)
  Sender: FDA-Public Use
  Company Number: FR-BRISTOL-MYERS SQUIBB COMPANY-14446066

PATIENT
  Age: 68 Year
  Sex: Female

DRUGS (5)
  1. BICNU [Suspect]
     Dosage: FROM 4NOV08-06NOV08
     Route: 042
     Dates: start: 20081104, end: 20081106
  2. DETICENE [Suspect]
     Dosage: FROM 04NOV08-06NOV08; DETICENE 100MG;
     Route: 042
     Dates: start: 20081104
  3. CISPLATIN [Suspect]
     Dosage: FROM 04NOV08-06NOV08
     Route: 042
     Dates: start: 20081106, end: 20081106
  4. PRIMPERAN TAB [Suspect]
     Indication: PREMEDICATION
     Dosage: FROM 04NOV08 - 06NOV08
     Route: 042
     Dates: start: 20081104, end: 20081104
  5. ZOPHREN [Suspect]
     Indication: PREMEDICATION
     Dosage: FROM 04NOV08-10NOV08
     Route: 042
     Dates: start: 20081110, end: 20081110

REACTIONS (1)
  - COLITIS ISCHAEMIC [None]
